FAERS Safety Report 7021682-4 (Version None)
Quarter: 2010Q3

REPORT INFORMATION
  Report Type: 
  Country: None (occurrence: None)
  Receive Date: 20100928
  Receipt Date: 20100908
  Transmission Date: 20110219
  Serious: Yes (Death)
  Sender: FDA-Public Use
  Company Number: JP-SOLVAY-00310005544

PATIENT
  Age: 33 Year
  Sex: Male

DRUGS (17)
  1. FLUVOXAMINE MALEATE [Suspect]
     Indication: PRODUCT USED FOR UNKNOWN INDICATION
  2. DEPAS (ETIZOLAM) [Suspect]
     Indication: PRODUCT USED FOR UNKNOWN INDICATION
  3. PERPHENAZINE [Suspect]
     Indication: PRODUCT USED FOR UNKNOWN INDICATION
  4. NORTRIPTYLINE HCL [Suspect]
     Indication: DEPRESSION
  5. TOLEDOMIN (MILNACIPRAN HYDROCHLORIDE) [Suspect]
     Indication: DEPRESSION
  6. ROHYPNOL (FLUNITRAZEPAM) [Suspect]
     Indication: DEPRESSION
  7. LENDORM [Suspect]
     Indication: DEPRESSION
  8. SURMONTIL [Suspect]
     Indication: PRODUCT USED FOR UNKNOWN INDICATION
  9. ANAFRANIL [Suspect]
     Indication: PRODUCT USED FOR UNKNOWN INDICATION
  10. RIZE (CLOTIAZEPAM) [Suspect]
     Indication: DEPRESSION
  11. DIAZEPAM [Suspect]
     Indication: PRODUCT USED FOR UNKNOWN INDICATION
  12. MEILAX (ETHYL LOFLAZEPATE) [Suspect]
     Indication: PRODUCT USED FOR UNKNOWN INDICATION
  13. SEDIEL (TANDOSPIRONE CITRATE) [Suspect]
     Indication: PRODUCT USED FOR UNKNOWN INDICATION
  14. VEGETAMIN-A (PHENOBARBITAL/CHLORPROMAZINE/PROMETHAZINE) [Suspect]
     Indication: PRODUCT USED FOR UNKNOWN INDICATION
  15. PROPRIETY ANTITUSSIVES (DIHYDROCODEINE PHOSPHATE/METHYLEPHEDRINE HYDRO [Suspect]
     Indication: PRODUCT USED FOR UNKNOWN INDICATION
  16. COLD REMEDIES (ACETAMINOPHEN/DIHYDROCODEINE PHOSPHATE/METHYLEPHEDRINE [Suspect]
     Indication: PRODUCT USED FOR UNKNOWN INDICATION
  17. OTHER UNIDENTIFIED DRUGS (OTHER  UNIDENTIFIED DRUGS) [Suspect]
     Indication: PRODUCT USED FOR UNKNOWN INDICATION

REACTIONS (12)
  - CARDIO-RESPIRATORY ARREST [None]
  - CARDIOMYOPATHY [None]
  - DRUG TOXICITY [None]
  - HAEMOPTYSIS [None]
  - HEPATIC NECROSIS [None]
  - HEPATIC STEATOSIS [None]
  - HEPATOMEGALY [None]
  - MULTIPLE DRUG OVERDOSE INTENTIONAL [None]
  - PULMONARY ALVEOLAR HAEMORRHAGE [None]
  - PULMONARY CONGESTION [None]
  - PULMONARY OEDEMA [None]
  - VISCERAL CONGESTION [None]
